FAERS Safety Report 25140315 (Version 1)
Quarter: 2025Q1

REPORT INFORMATION
  Report Type: Spontaneous
  Country: US (occurrence: US)
  Receive Date: 20250331
  Receipt Date: 20250331
  Transmission Date: 20250408
  Serious: No
  Sender: DIFGEN PHARMACEUTICALS LLC
  Company Number: None

PATIENT

DRUGS (2)
  1. FLUTICASONE PROPIONATE [Concomitant]
     Active Substance: FLUTICASONE PROPIONATE
     Indication: Product used for unknown indication
     Route: 065
  2. BUPRENORPHINE [Suspect]
     Active Substance: BUPRENORPHINE
     Indication: Pain
     Dosage: 10 MICROGRAM PER HOUR
     Route: 062

REACTIONS (2)
  - Pruritus [Unknown]
  - Skin irritation [Unknown]
